FAERS Safety Report 17563005 (Version 2)
Quarter: 2020Q1

REPORT INFORMATION
  Report Type: Report from Study
  Country: US (occurrence: US)
  Receive Date: 20200319
  Receipt Date: 20200319
  Transmission Date: 20200409
  Serious: Yes (Other)
  Sender: FDA-Public Use
  Company Number: US-BRISTOL-MYERS SQUIBB COMPANY-BMS-2019-053670

PATIENT
  Age: 57 Year
  Sex: Male

DRUGS (4)
  1. METFORMIN [Concomitant]
     Active Substance: METFORMIN HYDROCHLORIDE
     Indication: TYPE 2 DIABETES MELLITUS
     Dosage: UNK
     Route: 065
  2. NIVOLUMAB [Suspect]
     Active Substance: NIVOLUMAB
     Indication: MALIGNANT MELANOMA
     Dosage: 480 MILLIGRAM, Q4WK
     Route: 042
     Dates: start: 20190307
  3. NIVOLUMAB [Suspect]
     Active Substance: NIVOLUMAB
     Indication: MALIGNANT MELANOMA
     Dosage: 480 MILLIGRAM, Q4WK
     Route: 042
  4. JANUVIA [Concomitant]
     Active Substance: SITAGLIPTIN PHOSPHATE
     Indication: BLOOD GLUCOSE ABNORMAL
     Dosage: UNK
     Route: 065

REACTIONS (36)
  - Breast mass [Unknown]
  - Weight increased [Unknown]
  - Skin disorder [Recovered/Resolved]
  - Headache [Unknown]
  - Joint stiffness [Unknown]
  - Fatigue [Unknown]
  - Visual impairment [Unknown]
  - Dyspnoea [Unknown]
  - Synovial cyst [Unknown]
  - Constipation [Unknown]
  - Skin infection [Unknown]
  - Pain [Unknown]
  - Musculoskeletal discomfort [Unknown]
  - Fungal infection [Unknown]
  - Rash [Not Recovered/Not Resolved]
  - Arthralgia [Unknown]
  - Rash macular [Unknown]
  - Wheezing [Unknown]
  - Blood pressure increased [Unknown]
  - Contusion [Unknown]
  - Malaise [Unknown]
  - Cellulitis [Recovered/Resolved]
  - Dry skin [Unknown]
  - Urticaria [Unknown]
  - Mass [Unknown]
  - Nausea [Unknown]
  - Eczema [Unknown]
  - Rash pruritic [Unknown]
  - Diarrhoea [Unknown]
  - Upper respiratory tract infection [Unknown]
  - Productive cough [Unknown]
  - Erythema [Unknown]
  - Skin abrasion [Unknown]
  - Gait disturbance [Unknown]
  - Back pain [Unknown]
  - Abdominal pain upper [Unknown]

NARRATIVE: CASE EVENT DATE: 201903
